FAERS Safety Report 4454948-2 (Version None)
Quarter: 2004Q3

REPORT INFORMATION
  Report Type: 
  Country: None (occurrence: None)
  Receive Date: 20040824
  Receipt Date: 20040510
  Transmission Date: 20050211
  Serious: No
  Sender: FDA-Public Use
  Company Number: SU-2004-002351

PATIENT
  Age: 55 Year
  Sex: Male
  Weight: 72.5755 kg

DRUGS (1)
  1. BENICAR [Suspect]
     Indication: LYME DISEASE
     Dosage: 40 MG TID PO
     Route: 048
     Dates: start: 20040506

REACTIONS (1)
  - FATIGUE [None]
